FAERS Safety Report 7985210-9 (Version None)
Quarter: 2011Q4

REPORT INFORMATION
  Report Type: 
  Country: None (occurrence: None)
  Receive Date: 20111213
  Receipt Date: 20111127
  Transmission Date: 20120403
  Serious: Yes (Other)
  Sender: FDA-Public Use
  Company Number: ACO_26580_1998

PATIENT
  Sex: Male

DRUGS (5)
  1. VALIUM [Concomitant]
  2. MARCAINE /00330101/ (BUPIVACAINE) [Concomitant]
  3. FENTANYL [Concomitant]
  4. ZANAFLEX [Suspect]
     Indication: MUSCLE SPASTICITY
     Dosage: ORAL
     Route: 048
  5. NARCAN (NALOXONE HYDROCHLORDIE) [Concomitant]

REACTIONS (2)
  - LOSS OF CONSCIOUSNESS [None]
  - STUPOR [None]
